FAERS Safety Report 20454800 (Version 1)
Quarter: 2022Q1

REPORT INFORMATION
  Report Type: Spontaneous
  Country: PL (occurrence: PL)
  Receive Date: 20220210
  Receipt Date: 20220210
  Transmission Date: 20220423
  Serious: Yes (Hospitalization, Other)
  Sender: FDA-Public Use
  Company Number: None

PATIENT
  Age: 35 Year
  Sex: Male
  Weight: 80 kg

DRUGS (2)
  1. PREGABALIN [Suspect]
     Active Substance: PREGABALIN
     Indication: Antidepressant therapy
     Dosage: UNK
     Route: 048
  2. VENLAFAXINE HCL [Suspect]
     Active Substance: VENLAFAXINE HYDROCHLORIDE
     Dosage: UNK
     Route: 048

REACTIONS (5)
  - Suicide attempt [Unknown]
  - Altered state of consciousness [Unknown]
  - Toxicity to various agents [Unknown]
  - Confusional state [Unknown]
  - Drug abuse [Unknown]

NARRATIVE: CASE EVENT DATE: 20210101
